FAERS Safety Report 4661172-7 (Version None)
Quarter: 2005Q2

REPORT INFORMATION
  Report Type: 
  Country: None (occurrence: None)
  Receive Date: 20050425
  Receipt Date: 20050210
  Transmission Date: 20051028
  Serious: No
  Sender: FDA-Public Use
  Company Number: US113190

PATIENT
  Age: 75 Year
  Sex: Female
  Weight: 72.2 kg

DRUGS (7)
  1. SENSIPAR [Suspect]
     Indication: HYPERPARATHYROIDISM SECONDARY
     Dosage: 30 MG, 1 IN 1 DAYS
     Dates: start: 20040401, end: 20050101
  2. EPOGEN [Concomitant]
  3. SEVELAMER HCL [Concomitant]
  4. NEPHRO-VITE [Concomitant]
  5. NEPHROX [Concomitant]
  6. FLUTICASONE PROPIONATE [Concomitant]
  7. ANTACID TAB [Concomitant]

REACTIONS (1)
  - BONE PAIN [None]
